FAERS Safety Report 22092125 (Version 1)
Quarter: 2023Q1

REPORT INFORMATION
  Report Type: Spontaneous
  Country: JP (occurrence: JP)
  Receive Date: 20230314
  Receipt Date: 20230314
  Transmission Date: 20230418
  Serious: Yes (Other)
  Sender: FDA-Public Use
  Company Number: JP-AMGEN-JPNSP2022143456

PATIENT
  Sex: Female

DRUGS (2)
  1. LUMAKRAS [Suspect]
     Active Substance: SOTORASIB
     Indication: Non-small cell lung cancer
     Dosage: 960 MILLIGRAM
     Route: 048
  2. LUMAKRAS [Suspect]
     Active Substance: SOTORASIB
     Dosage: 460 MILLIGRAM
     Route: 048

REACTIONS (5)
  - Non-small cell lung cancer [Unknown]
  - Hepatic function abnormal [Unknown]
  - Eosinophil count increased [Unknown]
  - Rash [Unknown]
  - Diarrhoea [Unknown]
